FAERS Safety Report 5207596-0 (Version None)
Quarter: 2007Q1

REPORT INFORMATION
  Report Type: 
  Country: None (occurrence: None)
  Receive Date: 20070112
  Receipt Date: 20070102
  Transmission Date: 20070707
  Serious: Yes (Other)
  Sender: FDA-Public Use
  Company Number: US-PFIZER INC-2007002265

PATIENT
  Sex: Female

DRUGS (1)
  1. NEURONTIN [Suspect]
     Indication: DEPRESSION
     Dates: start: 20020601, end: 20040201

REACTIONS (4)
  - ANXIETY [None]
  - BALANCE DISORDER [None]
  - CONTUSION [None]
  - FALL [None]
